FAERS Safety Report 7554299-3 (Version None)
Quarter: 2011Q2

REPORT INFORMATION
  Report Type: 
  Country: None (occurrence: None)
  Receive Date: 20110617
  Receipt Date: 20110615
  Transmission Date: 20111010
  Serious: Yes (Other)
  Sender: FDA-Public Use
  Company Number: US-PFIZER INC-2011131544

PATIENT
  Sex: Female
  Weight: 81.6 kg

DRUGS (3)
  1. METFORMIN [Concomitant]
     Indication: DIABETES MELLITUS
     Dosage: UNK
  2. LYRICA [Suspect]
     Indication: NEURALGIA
     Dosage: ONCE A DAY
     Route: 048
     Dates: end: 20110101
  3. BENICAR [Concomitant]
     Indication: HYPERTENSION
     Dosage: UNK

REACTIONS (5)
  - ANAEMIA [None]
  - RASH [None]
  - URTICARIA [None]
  - HYPOTENSION [None]
  - DYSPNOEA [None]
